APPROVED DRUG PRODUCT: MECAMYLAMINE HYDROCHLORIDE
Active Ingredient: MECAMYLAMINE HYDROCHLORIDE
Strength: 2.5MG
Dosage Form/Route: TABLET;ORAL
Application: A204054 | Product #001
Applicant: LGM PHARMA SOLUTIONS LLC
Approved: Mar 19, 2013 | RLD: No | RS: Yes | Type: RX